FAERS Safety Report 22697923 (Version 2)
Quarter: 2024Q2

REPORT INFORMATION
  Report Type: Spontaneous
  Country: IE (occurrence: IE)
  Receive Date: 20230712
  Receipt Date: 20240627
  Transmission Date: 20240716
  Serious: Yes (Other)
  Sender: FDA-Public Use
  Company Number: IE-MLMSERVICE-20230622-4364357-1

PATIENT

DRUGS (9)
  1. PREDNISOLONE [Suspect]
     Active Substance: PREDNISOLONE
     Indication: Iridocyclitis
     Dosage: UNK, HOURLY (OCULAR USE)
  2. DEXAMETHASONE [Suspect]
     Active Substance: DEXAMETHASONE
     Indication: Conjunctivitis
     Dosage: UNK, QID (FOUR TIMES A DAY)
     Route: 061
  3. DEXAMETHASONE [Suspect]
     Active Substance: DEXAMETHASONE
     Dosage: UNK
     Route: 057
  4. BRINZOLAMIDE\TIMOLOL [Concomitant]
     Active Substance: BRINZOLAMIDE\TIMOLOL
     Indication: Iridocyclitis
     Dosage: UNK, BID (OCULAR USE)
  5. CHLORAMPHENICOL [Concomitant]
     Active Substance: CHLORAMPHENICOL
     Indication: Iridocyclitis
     Dosage: UNK, QID (OCULAR USE)
  6. CYCLOPENTOLATE [Concomitant]
     Active Substance: CYCLOPENTOLATE
     Indication: Iridocyclitis
     Dosage: UNK, TID (OCULAR USE)
  7. MYDRICAINE [Concomitant]
     Indication: Eye disorder
     Dosage: 2 DOSAGE FORM
     Route: 057
  8. MAXITROL [Concomitant]
     Active Substance: DEXAMETHASONE\NEOMYCIN SULFATE\POLYMYXIN B SULFATE
     Indication: Conjunctivitis
     Dosage: UNK, QID (FOUR TIMES A DAY)
     Route: 061
  9. NEOMYCIN [Concomitant]
     Active Substance: NEOMYCIN
     Indication: Conjunctivitis
     Dosage: UNK, QID (FOUR TIMES A DAY)
     Route: 061

REACTIONS (7)
  - Scleromalacia [Recovering/Resolving]
  - Iris adhesions [Recovering/Resolving]
  - Infective scleritis [Recovering/Resolving]
  - Cataract [Unknown]
  - Strabismus [Unknown]
  - Moraxella infection [Recovered/Resolved]
  - Therapeutic product effect incomplete [Unknown]
